FAERS Safety Report 16908817 (Version 2)
Quarter: 2019Q4

REPORT INFORMATION
  Report Type: Spontaneous
  Country: US (occurrence: US)
  Receive Date: 20191011
  Receipt Date: 20191016
  Transmission Date: 20200122
  Serious: No
  Sender: FDA-Public Use
  Company Number: US-009507513-1909USA005492

PATIENT
  Sex: Female

DRUGS (1)
  1. NEXPLANON [Suspect]
     Active Substance: ETONOGESTREL
     Dosage: 1 ROD EVERY 3 YEARS
     Route: 059

REACTIONS (2)
  - Device deployment issue [Not Recovered/Not Resolved]
  - Complication associated with device [Not Recovered/Not Resolved]
